FAERS Safety Report 6730086-0 (Version None)
Quarter: 2010Q2

REPORT INFORMATION
  Report Type: 
  Country: None (occurrence: None)
  Receive Date: 20100513
  Receipt Date: 20100426
  Transmission Date: 20101027
  Serious: No
  Sender: FDA-Public Use
  Company Number: WAES 1004USA04823

PATIENT
  Age: 14 Year
  Sex: Male

DRUGS (1)
  1. INJ IVOMEC UNK [Suspect]
     Indication: DRUG ADMINISTRATION ERROR
     Dosage: SC
     Route: 058
     Dates: start: 20100426, end: 20100426

REACTIONS (3)
  - ACCIDENTAL EXPOSURE [None]
  - HYPOAESTHESIA [None]
  - INJURY ASSOCIATED WITH DEVICE [None]
